FAERS Safety Report 7920128-9 (Version None)
Quarter: 2011Q4

REPORT INFORMATION
  Report Type: 
  Country: None (occurrence: None)
  Receive Date: 20111117
  Receipt Date: 20111108
  Transmission Date: 20120403
  Serious: Yes (Hospitalization, Other)
  Sender: FDA-Public Use
  Company Number: US-MYLANLABS-2011S1022132

PATIENT
  Age: 66 Year
  Sex: Female
  Weight: 58.06 kg

DRUGS (8)
  1. VITAMIN TAB [Concomitant]
  2. NEXIUM [Concomitant]
     Indication: GASTROOESOPHAGEAL REFLUX DISEASE
     Route: 048
  3. TRICOR [Concomitant]
  4. NITROFURANTOIN MONOHYDRATE/MACROCRYSTALS [Suspect]
     Indication: URINARY TRACT INFECTION
     Route: 048
     Dates: start: 20100603, end: 20100608
  5. FLUOXETINE HCL [Concomitant]
     Indication: DEPRESSION
     Route: 048
  6. BONIVA [Concomitant]
     Indication: OSTEOPENIA
     Route: 048
  7. ACETYLSALICYLIC ACID ENTERIC COATED [Concomitant]
  8. VITAMIN D [Concomitant]

REACTIONS (10)
  - INTERSTITIAL LUNG DISEASE [None]
  - INFLUENZA LIKE ILLNESS [None]
  - COUGH [None]
  - NAUSEA [None]
  - URTICARIA [None]
  - DYSPNOEA [None]
  - PYREXIA [None]
  - DEHYDRATION [None]
  - CHILLS [None]
  - PULMONARY FIBROSIS [None]
